FAERS Safety Report 22226605 (Version 2)
Quarter: 2023Q2

REPORT INFORMATION
  Report Type: Spontaneous
  Country: CA (occurrence: CA)
  Receive Date: 20230419
  Receipt Date: 20230509
  Transmission Date: 20230722
  Serious: Yes (Hospitalization)
  Sender: FDA-Public Use
  Company Number: CA-CELLTRION INC.-2023CA008027

PATIENT

DRUGS (3)
  1. INFLECTRA [Suspect]
     Active Substance: INFLIXIMAB-DYYB
     Indication: Crohn^s disease
     Dosage: 500 MG, 0, 2, 6 WEEKS, THEN EVERY 8 WEEKS
     Route: 042
     Dates: start: 20230327
  2. INFLECTRA [Suspect]
     Active Substance: INFLIXIMAB-DYYB
     Dosage: 500 MG, ON WEEK 2
     Route: 042
     Dates: start: 20230411, end: 20230411
  3. STELARA [Concomitant]
     Active Substance: USTEKINUMAB
     Dosage: UNK

REACTIONS (14)
  - Oral pruritus [Unknown]
  - Feeling abnormal [Unknown]
  - Paraesthesia oral [Unknown]
  - Dysphagia [Unknown]
  - Chest discomfort [Unknown]
  - Pruritus [Unknown]
  - Erythema [Unknown]
  - Dizziness [Recovered/Resolved]
  - Peripheral swelling [Unknown]
  - Discomfort [Unknown]
  - Condition aggravated [Unknown]
  - Anal fissure [Unknown]
  - Blood pressure fluctuation [Unknown]
  - Arthralgia [Unknown]

NARRATIVE: CASE EVENT DATE: 20230327
